FAERS Safety Report 10572769 (Version 1)
Quarter: 2014Q4

REPORT INFORMATION
  Report Type: Spontaneous
  Country: US (occurrence: None)
  Receive Date: 20141107
  Receipt Date: 20141107
  Transmission Date: 20150529
  Serious: Yes (Death, Hospitalization)
  Sender: FDA-Public Use
  Company Number: None

PATIENT
  Age: 78 Year
  Sex: Female
  Weight: 73.03 kg

DRUGS (1)
  1. XARELTO [Suspect]
     Active Substance: RIVAROXABAN
     Indication: THROMBOSIS
     Dosage: 1 TABLET
     Route: 048
     Dates: start: 20140802, end: 20140808

REACTIONS (2)
  - Gastrointestinal haemorrhage [None]
  - Haematemesis [None]

NARRATIVE: CASE EVENT DATE: 20140808
